FAERS Safety Report 5613533-7 (Version None)
Quarter: 2008Q1

REPORT INFORMATION
  Report Type: 
  Country: None (occurrence: None)
  Receive Date: 20080129
  Receipt Date: 20080115
  Transmission Date: 20080703
  Serious: Yes (Hospitalization)
  Sender: FDA-Public Use
  Company Number: L08-USA-00071-01

PATIENT
  Age: 64 Year
  Sex: Male
  Weight: 117.4816 kg

DRUGS (10)
  1. DILTIAZEM [Suspect]
  2. SIMVASTATIN [Suspect]
     Indication: HYPERLIPIDAEMIA
  3. SIMVASTATIN [Suspect]
     Indication: HYPERLIPIDAEMIA
  4. CYCLOSPORINE [Suspect]
  5. FUROSEMIDE [Suspect]
  6. ANGIOTENSIN RECEPTOR ANTAGONIST [Suspect]
  7. MYCOPHENOLATE MOFETIL [Concomitant]
  8. PREDNISONE (PRENISONE) [Concomitant]
  9. ASPIRIN [Concomitant]
  10. INSULIN [Concomitant]

REACTIONS (10)
  - BLOOD GLUCOSE INCREASED [None]
  - BLOOD SODIUM DECREASED [None]
  - CARBON DIOXIDE DECREASED [None]
  - COMPLICATIONS OF TRANSPLANTED KIDNEY [None]
  - DIARRHOEA [None]
  - HAEMATOCRIT DECREASED [None]
  - LYMPHOCYTE PERCENTAGE DECREASED [None]
  - RENAL FAILURE ACUTE [None]
  - RENAL TUBULAR DISORDER [None]
  - RHABDOMYOLYSIS [None]
